FAERS Safety Report 12446849 (Version 2)
Quarter: 2016Q2

REPORT INFORMATION
  Report Type: Spontaneous
  Country: BR (occurrence: BR)
  Receive Date: 20160608
  Receipt Date: 20160629
  Transmission Date: 20160815
  Serious: Yes (Other)
  Sender: FDA-Public Use
  Company Number: BR-SUN PHARMACEUTICAL INDUSTRIES LTD-2016RR-118055

PATIENT
  Age: 19 Year
  Sex: Male

DRUGS (1)
  1. ISOTRETINOIN [Suspect]
     Active Substance: ISOTRETINOIN
     Indication: ACNE
     Dosage: MAINTAINED UNTIL CUMULATIVE DOSE OF 120 MG/KG, TOTALING 7 MONTHS.
     Route: 065

REACTIONS (3)
  - Paronychia [Recovered/Resolved]
  - Ingrowing nail [Recovered/Resolved]
  - Excessive granulation tissue [Recovered/Resolved]
